FAERS Safety Report 13464224 (Version 1)
Quarter: 2017Q2

REPORT INFORMATION
  Report Type: Spontaneous
  Country: US (occurrence: US)
  Receive Date: 20170420
  Receipt Date: 20170420
  Transmission Date: 20170830
  Serious: Yes (Other)
  Sender: FDA-Public Use
  Company Number: US-ROCHE-443536

PATIENT
  Age: 17 Year
  Sex: Male
  Weight: 99.8 kg

DRUGS (2)
  1. ACCUTANE [Suspect]
     Active Substance: ISOTRETINOIN
     Route: 048
     Dates: start: 19991012, end: 199911
  2. ACCUTANE [Suspect]
     Active Substance: ISOTRETINOIN
     Indication: ACNE
     Dosage: ALTERNATING THERAPY: 40MG DAILY - 40 MG TWICE DAILY.
     Route: 048
     Dates: start: 19990824, end: 19991011

REACTIONS (6)
  - Blood cholesterol increased [Unknown]
  - Blood triglycerides increased [Unknown]
  - Inflammatory bowel disease [Unknown]
  - Colitis ulcerative [Unknown]
  - Colitis [Unknown]
  - Blood alkaline phosphatase increased [Unknown]

NARRATIVE: CASE EVENT DATE: 19990826
